FAERS Safety Report 15959050 (Version 5)
Quarter: 2019Q4

REPORT INFORMATION
  Report Type: Spontaneous
  Country: GB (occurrence: GB)
  Receive Date: 20190214
  Receipt Date: 20191223
  Transmission Date: 20200122
  Serious: Yes (Other)
  Sender: FDA-Public Use
  Company Number: GB-AUROBINDO-AUR-APL-2019-007537

PATIENT
  Age: 78 Year
  Sex: Male

DRUGS (4)
  1. TRANEXAMIC ACID. [Suspect]
     Active Substance: TRANEXAMIC ACID
     Indication: CHRONIC GASTROINTESTINAL BLEEDING
     Dosage: UNK
     Route: 065
  2. THALIDOMIDE [Suspect]
     Active Substance: THALIDOMIDE
     Indication: CHRONIC GASTROINTESTINAL BLEEDING
     Dosage: 100 MILLIGRAM, ONCE A DAY
     Route: 065
  3. THALIDOMIDE [Suspect]
     Active Substance: THALIDOMIDE
     Dosage: 200 MILLIGRAM, ONCE A DAY
     Route: 065
  4. VON WILLEBRAND FACTOR [Concomitant]
     Active Substance: VON WILLEBRAND FACTOR HUMAN
     Indication: PRODUCT USED FOR UNKNOWN INDICATION
     Dosage: UNK
     Route: 065

REACTIONS (4)
  - Drug ineffective [Recovered/Resolved]
  - Gastrointestinal haemorrhage [Recovered/Resolved]
  - Treatment failure [Unknown]
  - Therapy non-responder [Unknown]
